FAERS Safety Report 25587160 (Version 1)
Quarter: 2025Q3

REPORT INFORMATION
  Report Type: Spontaneous
  Country: US (occurrence: None)
  Receive Date: 20250721
  Receipt Date: 20250721
  Transmission Date: 20251021
  Serious: Yes (Death, Congenital Anomaly, Other)
  Sender: FDA-CTU
  Company Number: None

PATIENT
  Age: 33 Year
  Sex: Female
  Weight: 108.9 kg

DRUGS (2)
  1. AZATHIOPRINE [Suspect]
     Active Substance: AZATHIOPRINE
     Indication: Inflammatory bowel disease
     Dosage: FREQUENCY : DAILY;?
     Route: 048
  2. ESCITALOPRAM [Concomitant]
     Active Substance: ESCITALOPRAM OXALATE

REACTIONS (8)
  - Exposure during pregnancy [None]
  - Premature rupture of membranes [None]
  - Caesarean section [None]
  - Jaundice [None]
  - Blood alkaline phosphatase increased [None]
  - Maternal drugs affecting foetus [None]
  - Neonatal multi-organ failure [None]
  - Death neonatal [None]

NARRATIVE: CASE EVENT DATE: 20250622
